FAERS Safety Report 8196486-X (Version None)
Quarter: 2012Q1

REPORT INFORMATION
  Report Type: 
  Country: None (occurrence: None)
  Receive Date: 20120309
  Receipt Date: 20120308
  Transmission Date: 20120608
  Serious: Yes (Death)
  Sender: FDA-Public Use
  Company Number: ES-PFIZER INC-2012052223

PATIENT
  Age: 65 Year
  Sex: Male

DRUGS (2)
  1. CANDESARTAN CILEXETIL [Concomitant]
  2. SUTENT [Suspect]
     Indication: RENAL CELL CARCINOMA
     Dosage: 37.5 MG, 1X/DAY
     Dates: start: 20091201, end: 20100601

REACTIONS (3)
  - DEATH [None]
  - MUCOSAL INFLAMMATION [None]
  - ASTHENIA [None]
